FAERS Safety Report 9066405 (Version 2)
Quarter: 2013Q1

REPORT INFORMATION
  Report Type: Report from Study
  Country: CA (occurrence: CA)
  Receive Date: 20130214
  Receipt Date: 20130218
  Transmission Date: 20140127
  Serious: Yes (Other)
  Sender: FDA-Public Use
  Company Number: CA-ROCHE-1107678

PATIENT
  Age: 71 None
  Sex: Female
  Weight: 71.2 kg

DRUGS (13)
  1. RITUXAN [Suspect]
     Indication: RHEUMATOID ARTHRITIS
     Route: 042
     Dates: start: 20120821
  2. MICARDIS [Concomitant]
  3. ACTONEL [Concomitant]
  4. VITAMIN B12 [Concomitant]
  5. OMEGA 3-6-9 [Concomitant]
  6. TYLENOL [Concomitant]
     Route: 065
  7. DIPHENHYDRAMINE HCL [Concomitant]
     Indication: PREMEDICATION
     Route: 048
     Dates: start: 20120821, end: 20120821
  8. ACETAMINOPHEN [Concomitant]
     Indication: PREMEDICATION
     Route: 048
     Dates: start: 20120821, end: 20120821
  9. PREDNISONE [Concomitant]
  10. RABEPRAZOLE [Concomitant]
  11. METHYLPREDNISOLONE [Concomitant]
     Indication: PREMEDICATION
     Route: 042
     Dates: start: 20120821, end: 20120821
  12. GLUCOSAMINE SULFATE [Concomitant]
  13. FOLIC ACID [Concomitant]

REACTIONS (3)
  - Hypothyroidism [Not Recovered/Not Resolved]
  - Arthralgia [Not Recovered/Not Resolved]
  - Blood pressure systolic decreased [Recovered/Resolved]
